FAERS Safety Report 14703382 (Version 2)
Quarter: 2018Q2

REPORT INFORMATION
  Report Type: Report from Study
  Country: JP (occurrence: JP)
  Receive Date: 20180402
  Receipt Date: 20180517
  Transmission Date: 20180711
  Serious: Yes (Hospitalization, Other)
  Sender: FDA-Public Use
  Company Number: JP-AMGEN-JPNCT2017110630

PATIENT
  Age: 72 Year
  Sex: Female
  Weight: 58 kg

DRUGS (29)
  1. DARBEPOETIN ALFA [Suspect]
     Active Substance: DARBEPOETIN ALFA
     Indication: PRODUCT USED FOR UNKNOWN INDICATION
     Dosage: 20 MUG, QWK
     Route: 042
     Dates: start: 20170613, end: 20170704
  2. ISCOTIN [Concomitant]
     Active Substance: ISONIAZID
     Indication: EXTRAPULMONARY TUBERCULOSIS
     Dosage: 200 MG, QD
     Route: 048
     Dates: end: 20170705
  3. VITAMEDIN [Concomitant]
     Active Substance: CYANOCOBALAMIN\PYRIDOXINE HYDROCHLORIDE\THIAMINE
     Indication: NEUROPATHY PERIPHERAL
     Dosage: 1 DF, TID
     Route: 048
  4. METHYCOBAL [Concomitant]
     Active Substance: METHYLCOBALAMIN
     Indication: NEUROPATHY PERIPHERAL
     Dosage: 500 MUG, TID
     Route: 048
  5. ZYLORIC [Concomitant]
     Active Substance: ALLOPURINOL
     Indication: HYPERURICAEMIA
     Dosage: 100 MG, QD
     Route: 048
     Dates: end: 20170705
  6. RISUMIC [Concomitant]
     Active Substance: AMEZINIUM METILSULFATE
     Indication: PROCEDURAL HYPOTENSION
     Dosage: 10 MG, QD
     Route: 048
     Dates: end: 20170705
  7. ROCALTROL [Concomitant]
     Active Substance: CALCITRIOL
     Indication: HYPERPARATHYROIDISM SECONDARY
     Dosage: 1 MUG, 3X/WEEK
     Route: 042
  8. NEOMALLERMIN [Concomitant]
     Active Substance: DEXCHLORPHENIRAMINE MALEATE
     Indication: PRURITUS
     Dosage: 12 MG, QD
     Route: 048
  9. VITAMEDIN [Concomitant]
     Active Substance: CYANOCOBALAMIN\PYRIDOXINE HYDROCHLORIDE\THIAMINE
     Indication: NEUROPATHY PERIPHERAL
  10. PLETAAL [Concomitant]
     Active Substance: CILOSTAZOL
     Indication: PERIPHERAL ARTERIAL OCCLUSIVE DISEASE
     Dosage: 100 MG, BID
     Route: 048
  11. CONSTAN [Concomitant]
     Active Substance: ALPRAZOLAM
     Indication: ANXIETY DISORDER
     Dosage: 0.4 MG, QD
     Route: 048
  12. ROZEREM [Concomitant]
     Active Substance: RAMELTEON
     Indication: INSOMNIA
     Dosage: 8 MG, QD
     Route: 048
  13. MUCOSTA [Concomitant]
     Active Substance: REBAMIPIDE
     Indication: GASTRITIS PROPHYLAXIS
     Dosage: 100 MG, PRN
     Route: 048
  14. POTASSIUM IODIDE. [Concomitant]
     Active Substance: POTASSIUM IODIDE
     Indication: HYPERPARATHYROIDISM SECONDARY
     Dosage: 50 MG, 2X/WEEK
     Route: 048
  15. REGPARA [Concomitant]
     Active Substance: CINACALCET HYDROCHLORIDE
     Dosage: 50 MG, QD
     Route: 048
     Dates: end: 20170705
  16. CONSTAN [Concomitant]
     Active Substance: ALPRAZOLAM
     Indication: ANXIETY DISORDER
  17. FOSRENOL [Concomitant]
     Active Substance: LANTHANUM CARBONATE
     Indication: HYPERPHOSPHATAEMIA
     Dosage: 500 MG, QD
     Route: 048
     Dates: end: 20170705
  18. SHOSEIRYUTO [Concomitant]
     Active Substance: EPHEDRA SINICA STEM\HERBALS
     Indication: RHINITIS
     Dosage: 9 G, AS NECESSARY
     Route: 048
  19. LOXONIN [Concomitant]
     Active Substance: LOXOPROFEN SODIUM
     Indication: BACK PAIN
     Dosage: 60 MG, PRN
     Route: 048
  20. RINDERON VG [Concomitant]
     Active Substance: BETAMETHASONE VALERATE\GENTAMICIN SULFATE
     Indication: PRURITUS
     Dosage: UNK UNK, AS NECESSARY
     Route: 061
  21. PLAVIX [Concomitant]
     Active Substance: CLOPIDOGREL BISULFATE
     Indication: PERIPHERAL ARTERIAL OCCLUSIVE DISEASE
  22. JUVELA N [Concomitant]
     Active Substance: TOCOPHERYL NICOTINATE, D-.ALPHA.
     Indication: PERIPHERAL ARTERIAL OCCLUSIVE DISEASE
     Dosage: 200 MG, TID
     Route: 048
     Dates: end: 20170705
  23. ARTIST [Concomitant]
     Active Substance: CARVEDILOL
     Indication: CARDIAC FAILURE CHRONIC
     Dosage: 2.5 MG, QD
     Route: 048
     Dates: end: 20170705
  24. MOHRUS [Concomitant]
     Active Substance: KETOPROFEN
     Indication: BACK PAIN
     Dosage: 20 MG, QD
     Route: 061
  25. JUVELA N [Concomitant]
     Active Substance: TOCOPHERYL NICOTINATE, D-.ALPHA.
     Indication: PERIPHERAL ARTERIAL OCCLUSIVE DISEASE
  26. METHYCOBAL [Concomitant]
     Active Substance: METHYLCOBALAMIN
     Indication: NEUROPATHY PERIPHERAL
  27. PLAVIX [Concomitant]
     Active Substance: CLOPIDOGREL BISULFATE
     Indication: PERIPHERAL ARTERIAL OCCLUSIVE DISEASE
     Dosage: 75 MG, QD
     Route: 048
     Dates: end: 20170705
  28. HISHIPHAGENC [Concomitant]
     Indication: PRURITUS
     Dosage: 20 ML, 3 TIMES/WK
     Route: 042
     Dates: start: 20170627
  29. PENLES [Concomitant]
     Active Substance: LIDOCAINE
     Indication: PAIN PROPHYLAXIS
     Dosage: 1 DF, 3 TIMES/WK
     Route: 062
     Dates: start: 20170627

REACTIONS (3)
  - Nasopharyngitis [Recovered/Resolved]
  - Subcutaneous abscess [Recovering/Resolving]
  - Sepsis [Recovering/Resolving]

NARRATIVE: CASE EVENT DATE: 20170617
